FAERS Safety Report 10052079 (Version 1)
Quarter: 2014Q2

REPORT INFORMATION
  Report Type: Spontaneous
  Country: US (occurrence: None)
  Receive Date: 20140401
  Receipt Date: 20140401
  Transmission Date: 20141212
  Serious: Yes (Death, Hospitalization)
  Sender: FDA-Public Use
  Company Number: None

PATIENT
  Age: 80 Year
  Sex: Female
  Weight: 51 kg

DRUGS (14)
  1. SULFAMETHOXAZOLE/TRIMETHOPRIM [Suspect]
     Indication: RASH
     Dosage: PATIENT WAS ON CEPHALEXIN IN NURSING HOME (UNKNOWN DATES) THEN CEPHALEXIN DISCONTINUED AND CHANGED TO SULFAMETHOXAZOLE/TRIMETHOPRIM 5 DAYS PRIOR TO ADMISSION.
  2. TYLENOL [Concomitant]
  3. ALBUTEROL [Concomitant]
  4. ANTIBIOTIC [Concomitant]
  5. BUSPAR [Concomitant]
  6. NEXIUM [Concomitant]
  7. VISTARIL [Concomitant]
  8. LIDOCAINE [Concomitant]
  9. ATIVAN [Concomitant]
  10. METOPROLOL [Concomitant]
  11. RISPERIDONE [Concomitant]
  12. ZOLOFT [Concomitant]
  13. FLEET ANEMIA [Concomitant]
  14. ZINC OXIDE [Concomitant]

REACTIONS (12)
  - Drug eruption [None]
  - Erythema multiforme [None]
  - Hypotension [None]
  - Respiratory distress [None]
  - Septic shock [None]
  - Pneumonitis [None]
  - Hypernatraemia [None]
  - Renal failure acute [None]
  - Leukocytosis [None]
  - Lactic acidosis [None]
  - Stevens-Johnson syndrome [None]
  - Dermatitis bullous [None]
